FAERS Safety Report 4600354-7 (Version None)
Quarter: 2005Q1

REPORT INFORMATION
  Report Type: 
  Country: None (occurrence: None)
  Receive Date: 20050127
  Receipt Date: 20041103
  Transmission Date: 20050727
  Serious: No
  Sender: FDA-Public Use
  Company Number: USA041183385

PATIENT
  Age: 27 Year
  Sex: Male

DRUGS (1)
  1. STRATTERA [Suspect]
     Dosage: 25 MG
     Dates: start: 20040819, end: 20040922

REACTIONS (2)
  - INSOMNIA [None]
  - SOMNOLENCE [None]
